FAERS Safety Report 9669296 (Version 1)
Quarter: 2013Q4

REPORT INFORMATION
  Report Type: Spontaneous
  Country: JP (occurrence: None)
  Receive Date: 20131101
  Receipt Date: 20131101
  Transmission Date: 20140711
  Serious: Yes (Other)
  Sender: FDA-Public Use
  Company Number: 2013-003357

PATIENT
  Age: 88 Year
  Sex: Female

DRUGS (1)
  1. ACTONEL [Suspect]
     Indication: OSTEOPOROSIS
     Route: 048
     Dates: end: 200904

REACTIONS (7)
  - Osteomyelitis [None]
  - Swelling face [None]
  - Trismus [None]
  - Abscess jaw [None]
  - Exposed bone in jaw [None]
  - Dental fistula [None]
  - Stomatitis [None]
